FAERS Safety Report 9680091 (Version 2)
Quarter: 2013Q4

REPORT INFORMATION
  Report Type: Spontaneous
  Country: NO (occurrence: NO)
  Receive Date: 20131111
  Receipt Date: 20131125
  Transmission Date: 20140711
  Serious: Yes (Hospitalization, Other)
  Sender: FDA-Public Use
  Company Number: NO-ROCHE-1300927

PATIENT
  Age: 81 Year
  Sex: Male

DRUGS (8)
  1. MYCOPHENOLATE MOFETIL [Suspect]
     Indication: GRANULOMATOSIS WITH POLYANGIITIS
     Route: 065
     Dates: start: 2002, end: 2011
  2. RITUXIMAB [Suspect]
     Indication: GRANULOMATOSIS WITH POLYANGIITIS
     Route: 065
     Dates: start: 201104
  3. PREDNISOLONE [Suspect]
     Indication: GRANULOMATOSIS WITH POLYANGIITIS
     Dosage: UP TO 40 MG DAILY
     Route: 065
     Dates: start: 201104
  4. PREDNISOLONE [Suspect]
     Route: 065
  5. PREDNISOLONE [Suspect]
     Route: 048
  6. METHOTREXATE [Concomitant]
  7. METHYLPREDNISOLONE [Concomitant]
     Indication: GRANULOMATOSIS WITH POLYANGIITIS
     Route: 065
  8. CYCLOPHOSPHAMIDE [Concomitant]

REACTIONS (6)
  - Pneumocystis jirovecii pneumonia [Recovered/Resolved]
  - Granulomatosis with polyangiitis [Recovered/Resolved]
  - Pyrexia [Unknown]
  - Night sweats [Unknown]
  - Herpes zoster [Recovered/Resolved]
  - Pneumonia [Recovered/Resolved]
